FAERS Safety Report 6814130-8 (Version None)
Quarter: 2010Q3

REPORT INFORMATION
  Report Type: 
  Country: None (occurrence: None)
  Receive Date: 20100702
  Receipt Date: 20100217
  Transmission Date: 20110219
  Serious: No
  Sender: FDA-Public Use
  Company Number: A0844933A

PATIENT
  Age: 60 Year
  Sex: Male

DRUGS (6)
  1. ADVAIR DISKUS 100/50 [Suspect]
     Indication: CHRONIC OBSTRUCTIVE PULMONARY DISEASE
     Dosage: 2PUFF TWICE PER DAY
     Route: 055
     Dates: start: 20100121
  2. SPIRIVA [Concomitant]
  3. ASPIRIN [Concomitant]
  4. CENTRUM SILVER [Concomitant]
  5. FLECAINIDE ACETATE [Concomitant]
  6. LUNESTA [Concomitant]

REACTIONS (9)
  - EYE PAIN [None]
  - FACIAL PAIN [None]
  - HEADACHE [None]
  - INCREASED UPPER AIRWAY SECRETION [None]
  - MOUTH HAEMORRHAGE [None]
  - MOUTH ULCERATION [None]
  - RHINORRHOEA [None]
  - SINUSITIS [None]
  - THROAT IRRITATION [None]
